FAERS Safety Report 6307018-2 (Version None)
Quarter: 2009Q3

REPORT INFORMATION
  Report Type: 
  Country: None (occurrence: None)
  Receive Date: 20090812
  Receipt Date: 20090803
  Transmission Date: 20100115
  Serious: Yes (Hospitalization)
  Sender: FDA-Public Use
  Company Number: PHHY2009FR32530

PATIENT
  Sex: Female

DRUGS (5)
  1. TEGRETOL [Suspect]
     Dosage: 600 MG/DAY
  2. DANTRIUM [Concomitant]
     Dosage: 250 MG/DAY
  3. RISPERDAL [Concomitant]
     Dosage: 2 MG/DAY
  4. ALFUZOSIN HCL [Concomitant]
     Dosage: 10 MG/DAY
  5. LOVENOX [Concomitant]
     Dosage: UNK
     Route: 058

REACTIONS (2)
  - CHOLESTASIS [None]
  - GAMMA-GLUTAMYLTRANSFERASE INCREASED [None]
